FAERS Safety Report 9553774 (Version 3)
Quarter: 2014Q1

REPORT INFORMATION
  Report Type: Report from Study
  Country: CZ (occurrence: CZ)
  Receive Date: 20130925
  Receipt Date: 20140106
  Transmission Date: 20141002
  Serious: Yes (Hospitalization, Disabling)
  Sender: FDA-Public Use
  Company Number: PHHY2013CZ094493

PATIENT
  Age: 68 Year
  Sex: Female

DRUGS (11)
  1. AMN107 [Suspect]
     Indication: CHRONIC MYELOID LEUKAEMIA
     Dosage: 800 MG, DAILY
     Route: 048
  2. BETALOC - SLOW RELEASE [Concomitant]
     Dosage: 1 DF, QD
  3. GODASAL [Concomitant]
     Dosage: 1 DF, QD
  4. FURON [Concomitant]
     Dosage: 1 DF, BID
  5. VEROSPIRON [Concomitant]
     Dosage: 1 DF, BID
  6. DIGOXIN [Concomitant]
  7. TRITACE [Concomitant]
     Dosage: 1 DF, QD
  8. APO ATORVASTATIN [Concomitant]
     Dosage: 1 DF, QD
  9. SERTIVAN [Concomitant]
     Dosage: 1 DF, BID
  10. PURINOL [Concomitant]
     Dosage: 1 DF, QD
  11. WARFARIN [Concomitant]

REACTIONS (1)
  - Peripheral ischaemia [Recovering/Resolving]
